FAERS Safety Report 17643662 (Version 1)
Quarter: 2020Q2

REPORT INFORMATION
  Report Type: Spontaneous
  Country: US (occurrence: US)
  Receive Date: 20200408
  Receipt Date: 20200408
  Transmission Date: 20200713
  Serious: No
  Sender: FDA-Public Use
  Company Number: US-ALLERGAN-1946989US

PATIENT
  Age: 54 Year
  Sex: Female

DRUGS (5)
  1. CITALOPRAM [Concomitant]
     Active Substance: CITALOPRAM HYDROBROMIDE
     Dosage: 20 MG, QD
  2. PROMETRIUM [Concomitant]
     Active Substance: PROGESTERONE
     Dosage: 200 MG, QD
  3. LIOTHYRONINE [Concomitant]
     Active Substance: LIOTHYRONINE
     Dosage: 5 ?G, QD
  4. LEVOTHYROXINE. [Concomitant]
     Active Substance: LEVOTHYROXINE
     Dosage: 100 ?G, QD
  5. LILETTA [Suspect]
     Active Substance: LEVONORGESTREL
     Indication: MENSTRUATION IRREGULAR
     Dosage: 52 MG, SINGLE
     Route: 015
     Dates: start: 20191029, end: 20191112

REACTIONS (2)
  - Device expulsion [Recovered/Resolved]
  - Off label use [Unknown]

NARRATIVE: CASE EVENT DATE: 20191029
